FAERS Safety Report 13867865 (Version 1)
Quarter: 2017Q3

REPORT INFORMATION
  Report Type: Report from Study
  Country: US (occurrence: US)
  Receive Date: 20170814
  Receipt Date: 20170814
  Transmission Date: 20171127
  Serious: No
  Sender: FDA-Public Use
  Company Number: US-ACADIA PHARMACEUTICALS INC.-ACA-2017-003631

PATIENT
  Sex: Male

DRUGS (3)
  1. NUPLAZID [Suspect]
     Active Substance: PIMAVANSERIN TARTRATE
     Indication: HALLUCINATION
  2. NUPLAZID [Suspect]
     Active Substance: PIMAVANSERIN TARTRATE
     Indication: DELUSION
  3. NUPLAZID [Suspect]
     Active Substance: PIMAVANSERIN TARTRATE
     Indication: PARKINSON^S DISEASE PSYCHOSIS
     Dosage: 1 TABLET, QD
     Route: 048
     Dates: start: 20170522

REACTIONS (7)
  - Hallucination [Recovered/Resolved]
  - Gait disturbance [Unknown]
  - Delusional perception [Recovered/Resolved]
  - Abnormal behaviour [Recovered/Resolved]
  - Confusional state [Unknown]
  - Intentional underdose [Unknown]
  - Psychotic disorder [Recovered/Resolved]
